FAERS Safety Report 16449247 (Version 2)
Quarter: 2019Q3

REPORT INFORMATION
  Report Type: Spontaneous
  Country: JP (occurrence: JP)
  Receive Date: 20190619
  Receipt Date: 20190709
  Transmission Date: 20191004
  Serious: Yes (Hospitalization)
  Sender: FDA-Public Use
  Company Number: PHJP2019JP006894

PATIENT
  Age: 84 Year
  Sex: Female

DRUGS (2)
  1. ZOMETA [Suspect]
     Active Substance: ZOLEDRONIC ACID
     Dosage: 4 MG, UNK
     Route: 041
     Dates: start: 20120522, end: 20131010
  2. ZOMETA [Suspect]
     Active Substance: ZOLEDRONIC ACID
     Indication: METASTASES TO BONE
     Dosage: UNK
     Route: 041
     Dates: start: 200804, end: 201204

REACTIONS (14)
  - Purulence [Unknown]
  - Exposed bone in jaw [Unknown]
  - Osteonecrosis of jaw [Not Recovered/Not Resolved]
  - Toothache [Unknown]
  - Swelling [Unknown]
  - Alveolar bone resorption [Unknown]
  - Cognitive disorder [Unknown]
  - Bone sequestrum [Unknown]
  - Pain [Unknown]
  - Fistula [Unknown]
  - Feeling abnormal [Unknown]
  - Erythema [Unknown]
  - Tooth loss [Unknown]
  - Infection [Unknown]

NARRATIVE: CASE EVENT DATE: 201301
